FAERS Safety Report 17814927 (Version 1)
Quarter: 2020Q2

REPORT INFORMATION
  Report Type: Spontaneous
  Country: CN (occurrence: CN)
  Receive Date: 20200522
  Receipt Date: 20200522
  Transmission Date: 20200714
  Serious: Yes (Hospitalization, Other)
  Sender: FDA-Public Use
  Company Number: CN-SA-2020SA128013

PATIENT
  Age: 22 Year
  Sex: Male

DRUGS (1)
  1. AUBAGIO [Suspect]
     Active Substance: TERIFLUNOMIDE
     Indication: MULTIPLE SCLEROSIS
     Dosage: 14 MG, QD
     Route: 048
     Dates: start: 201811

REACTIONS (10)
  - Eye pain [Unknown]
  - Multiple sclerosis relapse [Recovered/Resolved]
  - Hyporeflexia [Recovered/Resolved]
  - Nasopharyngitis [Unknown]
  - Visual impairment [Recovered/Resolved]
  - Eye swelling [Unknown]
  - Hepatic calcification [Recovered/Resolved]
  - Multiple sclerosis [Recovered/Resolved]
  - Diplopia [Unknown]
  - Pulmonary mass [Recovered/Resolved]

NARRATIVE: CASE EVENT DATE: 201901
